FAERS Safety Report 14908328 (Version 1)
Quarter: 2018Q2

REPORT INFORMATION
  Report Type: Spontaneous
  Country: US (occurrence: US)
  Receive Date: 20180517
  Receipt Date: 20180517
  Transmission Date: 20180711
  Serious: Yes (Other)
  Sender: FDA-Public Use
  Company Number: US-JNJFOC-20180519205

PATIENT
  Age: 6 Decade

DRUGS (5)
  1. ASA [Concomitant]
     Active Substance: ASPIRIN
     Indication: INTRACRANIAL ANEURYSM
     Route: 065
  2. REOPRO [Suspect]
     Active Substance: ABCIXIMAB
     Indication: INTRACRANIAL ANEURYSM
     Route: 042
  3. CLOPIDOGREL [Concomitant]
     Active Substance: CLOPIDOGREL BISULFATE
     Indication: INTRACRANIAL ANEURYSM
     Route: 065
  4. REOPRO [Suspect]
     Active Substance: ABCIXIMAB
     Indication: INTRACRANIAL ANEURYSM
     Route: 013
  5. HEPARIN [Suspect]
     Active Substance: HEPARIN SODIUM
     Indication: INTRACRANIAL ANEURYSM
     Route: 040

REACTIONS (4)
  - Cerebral infarction [Unknown]
  - Incorrect route of drug administration [Unknown]
  - Off label use [Unknown]
  - Product use in unapproved indication [Unknown]
